FAERS Safety Report 7781884-6 (Version None)
Quarter: 2011Q3

REPORT INFORMATION
  Report Type: 
  Country: None (occurrence: None)
  Receive Date: 20110927
  Receipt Date: 20110921
  Transmission Date: 20111222
  Serious: Yes (Death, Hospitalization, Other)
  Sender: FDA-Public Use
  Company Number: US-CELGENEUS-163-21880-11081549

PATIENT
  Sex: Female
  Weight: 79.4 kg

DRUGS (17)
  1. REVLIMID [Suspect]
     Dosage: 5 MILLIGRAM
     Route: 048
     Dates: start: 20110825, end: 20110830
  2. SYNTHROID [Concomitant]
     Dosage: 100 MICROGRAM
     Route: 048
  3. FERROUS SULFATE TAB [Concomitant]
     Dosage: 27 MILLIGRAM
     Route: 065
  4. MIRALAX [Concomitant]
     Route: 065
  5. REVLIMID [Suspect]
     Dosage: 10 MILLIGRAM
     Route: 048
     Dates: start: 20110728
  6. ATENOLOL [Concomitant]
     Dosage: 100
     Route: 048
  7. INDAPAMIDE [Concomitant]
     Dosage: 2.5 MILLIGRAM
     Route: 048
  8. MULTI-VITAMINS [Concomitant]
     Route: 065
     Dates: start: 20100707
  9. VENLAFAXINE HYDROCHLORIDE [Concomitant]
     Dosage: 150 MILLIGRAM
     Route: 065
  10. TRAMADOL HCL [Concomitant]
     Indication: PAIN
     Dosage: 50
     Route: 048
  11. ATIVAN [Concomitant]
     Dosage: .5 MILLIGRAM
     Route: 048
  12. ZOLOFT [Concomitant]
     Indication: DEPRESSION
     Dosage: 50 MILLIGRAM
     Route: 065
  13. ARANESP [Concomitant]
     Dosage: 300
     Route: 065
     Dates: start: 20110816
  14. PRILOSEC [Concomitant]
     Dosage: 40
     Route: 048
  15. EFFEXOR [Concomitant]
     Indication: DEPRESSION
     Route: 065
  16. STOOL SOFTENER [Concomitant]
     Route: 065
  17. DAYPRO [Concomitant]
     Dosage: 60
     Route: 065

REACTIONS (8)
  - DEATH [None]
  - BONE MARROW FAILURE [None]
  - BLOOD POTASSIUM DECREASED [None]
  - ASTHENIA [None]
  - NO THERAPEUTIC RESPONSE [None]
  - PNEUMONIA [None]
  - RASH PRURITIC [None]
  - WHITE BLOOD CELL COUNT DECREASED [None]
